FAERS Safety Report 23610885 (Version 4)
Quarter: 2024Q4

REPORT INFORMATION
  Report Type: Spontaneous
  Country: CA (occurrence: CA)
  Receive Date: 20240308
  Receipt Date: 20241210
  Transmission Date: 20250115
  Serious: Yes (Other)
  Sender: PFIZER
  Company Number: CA-PFIZER INC-202400057744

PATIENT
  Age: 9 Year
  Sex: Male

DRUGS (9)
  1. SOMATROPIN [Suspect]
     Active Substance: SOMATROPIN
     Indication: Growth hormone deficiency
     Dosage: 750 UG, 1X/DAY
     Route: 058
  2. SOMATROPIN [Suspect]
     Active Substance: SOMATROPIN
     Dosage: 900 UG 7X/WEEK
     Route: 058
  3. ALVESCO [Concomitant]
     Active Substance: CICLESONIDE
     Dosage: 1 DF, 1X/DAY (1 PUFF DAILY)
     Route: 055
  4. CLOBAZAM [Concomitant]
     Active Substance: CLOBAZAM
     Dosage: 10 MG, 1X/DAY (IN THE EVENING)
     Route: 048
  5. KEPPRA [Concomitant]
     Active Substance: LEVETIRACETAM
     Dosage: 375 MG, 2X/DAY
     Route: 048
  6. PREDNISOLONE [Concomitant]
     Active Substance: PREDNISOLONE
     Dosage: 600 UL, 2X/DAY (600 MICROLITRE)
     Route: 048
  7. SYNTHROID [Concomitant]
     Active Substance: LEVOTHYROXINE SODIUM
     Dosage: 44 UG, 1X/DAY
     Route: 048
  8. TOPAMAX [Concomitant]
     Active Substance: TOPIRAMATE
     Dosage: 12500 UG, 2X/DAY
     Route: 048
  9. ALBUTEROL SULFATE [Concomitant]
     Active Substance: ALBUTEROL SULFATE
     Dosage: 2 DF, AS NEEDED (2 PUFFS Q 4 HOURS AS NEEDED)
     Route: 055

REACTIONS (1)
  - Epilepsy [Not Recovered/Not Resolved]
